FAERS Safety Report 25390031 (Version 1)
Quarter: 2025Q2

REPORT INFORMATION
  Report Type: Spontaneous
  Country: BR (occurrence: BR)
  Receive Date: 20250603
  Receipt Date: 20250603
  Transmission Date: 20250717
  Serious: Yes (Other)
  Sender: PFIZER
  Company Number: BR-PFIZER INC-PV202500065318

PATIENT
  Age: 65 Year
  Sex: Female

DRUGS (5)
  1. TALIGLUCERASE ALFA [Suspect]
     Active Substance: TALIGLUCERASE ALFA
     Indication: Gaucher^s disease
     Route: 042
     Dates: start: 2014
  2. AMITRIPTYLINE [Concomitant]
     Active Substance: AMITRIPTYLINE
  3. LEVOTHYROXINE SODIUM [Concomitant]
     Active Substance: LEVOTHYROXINE SODIUM
  4. SIMVASTATIN [Concomitant]
     Active Substance: SIMVASTATIN
  5. PREGABALIN [Concomitant]
     Active Substance: PREGABALIN

REACTIONS (4)
  - Cervix cancer metastatic [Unknown]
  - Cataract [Unknown]
  - Arthralgia [Unknown]
  - Paraesthesia [Unknown]

NARRATIVE: CASE EVENT DATE: 20240901
